FAERS Safety Report 13795546 (Version 1)
Quarter: 2017Q3

REPORT INFORMATION
  Report Type: Report from Study
  Country: None (occurrence: US)
  Receive Date: 20170726
  Receipt Date: 20170726
  Transmission Date: 20171127
  Serious: Yes (Hospitalization)
  Sender: FDA-Public Use
  Company Number: US-ABBVIE-17K-163-2048458-00

PATIENT
  Age: 50 Year
  Sex: Male

DRUGS (1)
  1. HUMIRA [Suspect]
     Active Substance: ADALIMUMAB
     Indication: PSORIASIS
     Route: 058

REACTIONS (7)
  - Headache [Not Recovered/Not Resolved]
  - Dizziness [Not Recovered/Not Resolved]
  - Pyrexia [Unknown]
  - Pain [Unknown]
  - Chills [Unknown]
  - Product storage error [Not Recovered/Not Resolved]
  - Drug administration error [Not Recovered/Not Resolved]

NARRATIVE: CASE EVENT DATE: 201707
